FAERS Safety Report 12939898 (Version 1)
Quarter: 2016Q4

REPORT INFORMATION
  Report Type: Spontaneous
  Country: GB (occurrence: GB)
  Receive Date: 20161115
  Receipt Date: 20161115
  Transmission Date: 20170207
  Serious: Yes (Hospitalization)
  Sender: FDA-Public Use
  Company Number: GB-BAYER-2016-217701

PATIENT
  Age: 74 Year
  Sex: Male

DRUGS (18)
  1. GLYCERYL TRINITRATE [Concomitant]
     Active Substance: NITROGLYCERIN
  2. BUMETANIDE. [Concomitant]
     Active Substance: BUMETANIDE
  3. CARVEDILOL. [Concomitant]
     Active Substance: CARVEDILOL
  4. ISOSORBIDE. [Concomitant]
     Active Substance: ISOSORBIDE
  5. ROPINIROLE. [Concomitant]
     Active Substance: ROPINIROLE
  6. SPIRONOLACTONE. [Concomitant]
     Active Substance: SPIRONOLACTONE
  7. ACETYLSALICYLIC ACID (} 100 MG) [Suspect]
     Active Substance: ASPIRIN
     Indication: PAIN
     Dosage: 300 MG, PRN
     Route: 048
  8. ONDANSETRON [Concomitant]
     Active Substance: ONDANSETRON
  9. TAMSULOSIN [Concomitant]
     Active Substance: TAMSULOSIN
  10. TIOTROPIUM [Concomitant]
     Active Substance: TIOTROPIUM
  11. CARBOCISTEINE [Concomitant]
     Active Substance: CARBOCYSTEINE
  12. LOSARTAN. [Concomitant]
     Active Substance: LOSARTAN
  13. MIRTAZAPINE. [Concomitant]
     Active Substance: MIRTAZAPINE
  14. PANTOPRAZOLE [Concomitant]
     Active Substance: PANTOPRAZOLE SODIUM
  15. SALBUTAMOL [Concomitant]
     Active Substance: ALBUTEROL
  16. WARFARIN [Suspect]
     Active Substance: WARFARIN
     Indication: ATRIAL FIBRILLATION
     Dosage: 3 MG, QD
     Route: 048
     Dates: start: 20081111
  17. QUININE [Concomitant]
     Active Substance: QUININE
  18. SERETIDE [Concomitant]
     Active Substance: FLUTICASONE PROPIONATE\SALMETEROL XINAFOATE

REACTIONS (2)
  - Epistaxis [Recovering/Resolving]
  - International normalised ratio increased [Unknown]

NARRATIVE: CASE EVENT DATE: 20161102
